FAERS Safety Report 13435954 (Version 1)
Quarter: 2017Q2

REPORT INFORMATION
  Report Type: Spontaneous
  Country: US (occurrence: US)
  Receive Date: 20170412
  Receipt Date: 20170412
  Transmission Date: 20170830
  Serious: Yes (Life-Threatening, Hospitalization, Disabling, Other)
  Sender: FDA-Public Use
  Company Number: None

PATIENT
  Age: 44 Year
  Sex: Female
  Weight: 123.3 kg

DRUGS (1)
  1. HYOSCYAMINE SULFATE 0.125MG TABL [Suspect]
     Active Substance: HYOSCYAMINE SULFATE
     Indication: IRRITABLE BOWEL SYNDROME
     Dosage: ?          QUANTITY:1 TABLET(S);?
     Route: 048
     Dates: start: 20170206, end: 20170412

REACTIONS (12)
  - Seizure [None]
  - Infection [None]
  - Shock [None]
  - Heart rate increased [None]
  - Urinary tract infection [None]
  - Fall [None]
  - Electrocardiogram abnormal [None]
  - Diabetes mellitus [None]
  - Blood disorder [None]
  - Dizziness [None]
  - Head injury [None]
  - Hypertension [None]

NARRATIVE: CASE EVENT DATE: 20170314
